FAERS Safety Report 21640125 (Version 2)
Quarter: 2022Q4

REPORT INFORMATION
  Report Type: Spontaneous
  Country: GB (occurrence: GB)
  Receive Date: 20221124
  Receipt Date: 20221212
  Transmission Date: 20230113
  Serious: Yes (Other)
  Sender: FDA-Public Use
  Company Number: None

PATIENT
  Sex: Female
  Weight: 58 kg

DRUGS (1)
  1. BOTOX [Suspect]
     Active Substance: ONABOTULINUMTOXINA
     Indication: Product used for unknown indication
     Dosage: UNK, SINGLE

REACTIONS (5)
  - Medication error [Unknown]
  - Contusion [Unknown]
  - Facial paresis [Not Recovered/Not Resolved]
  - Hypoaesthesia [Not Recovered/Not Resolved]
  - Muscular weakness [Not Recovered/Not Resolved]
